FAERS Safety Report 5046359-6 (Version None)
Quarter: 2006Q2

REPORT INFORMATION
  Report Type: 
  Country: None (occurrence: None)
  Receive Date: 20060601
  Receipt Date: 20060214
  Transmission Date: 20061013
  Serious: No
  Sender: FDA-Public Use
  Company Number: 2006PV008680

PATIENT
  Age: 81 Year
  Sex: Female
  Weight: 91.173 kg

DRUGS (14)
  1. BYETTA [Suspect]
     Indication: DIABETES MELLITUS NON-INSULIN-DEPENDENT
     Dosage: 10 MCG;BID;SC
     Route: 058
     Dates: start: 20060209
  2. VYTORIN [Concomitant]
  3. AMARYL [Concomitant]
  4. TOPROL-XL [Concomitant]
  5. SYNTHROID [Concomitant]
  6. ISOSORBIDE DINITRATE [Concomitant]
  7. ZANTAC [Concomitant]
  8. PLAVIX [Concomitant]
  9. EVISTA [Concomitant]
  10. ECOTRIN [Concomitant]
  11. OCUVITE [Concomitant]
  12. OSCAL [Concomitant]
  13. ACETAMINOPHEN [Concomitant]
  14. CENTRUM [Concomitant]

REACTIONS (4)
  - ERUCTATION [None]
  - HEADACHE [None]
  - NAUSEA [None]
  - VOMITING [None]
